FAERS Safety Report 15611191 (Version 1)
Quarter: 2018Q4

REPORT INFORMATION
  Report Type: Spontaneous
  Country: US (occurrence: US)
  Receive Date: 20181113
  Receipt Date: 20181113
  Transmission Date: 20190205
  Serious: No
  Sender: FDA-Public Use
  Company Number: US-TRIS PHARMA, INC.-2018TRISPO00825

PATIENT

DRUGS (4)
  1. FLINTSTONES [Concomitant]
     Indication: SUPPLEMENTATION THERAPY
     Dosage: 1 CHEW DAILY
     Route: 065
  2. SMARTY PANTS VITAMINS [Concomitant]
     Indication: SUPPLEMENTATION THERAPY
     Dosage: 4 GUMMIES DAILY
     Route: 065
  3. QUILLICHEW ER [Suspect]
     Active Substance: METHYLPHENIDATE HYDROCHLORIDE
     Indication: ATTENTION DEFICIT/HYPERACTIVITY DISORDER
     Dosage: 40 MG, ONE CHEW DAILY
     Route: 065
  4. QUILLIVANT XR [Suspect]
     Active Substance: METHYLPHENIDATE HYDROCHLORIDE
     Indication: ATTENTION DEFICIT/HYPERACTIVITY DISORDER
     Dosage: UNK
     Route: 065

REACTIONS (3)
  - Agitation [Recovered/Resolved]
  - Headache [Recovered/Resolved]
  - Abdominal pain upper [Recovered/Resolved]

NARRATIVE: CASE EVENT DATE: 201809
